FAERS Safety Report 9629561 (Version 2)
Quarter: 2013Q4

REPORT INFORMATION
  Report Type: Report from Study
  Country: US (occurrence: US)
  Receive Date: 20131017
  Receipt Date: 20131213
  Transmission Date: 20140711
  Serious: Yes (Death, Hospitalization)
  Sender: FDA-Public Use
  Company Number: US-ABBVIE-13P-163-1157901-00

PATIENT
  Sex: Male

DRUGS (4)
  1. NORVIR [Suspect]
     Indication: HIV INFECTION
     Dates: start: 201306
  2. TRUVADA [Concomitant]
     Indication: HIV INFECTION
  3. PREZISTA [Concomitant]
     Indication: HIV INFECTION
  4. BACTRIM [Concomitant]
     Indication: PROPHYLAXIS

REACTIONS (5)
  - Acute respiratory distress syndrome [Fatal]
  - Pneumonia [Fatal]
  - Hypoxia [Fatal]
  - HIV infection [Fatal]
  - Hospitalisation [Unknown]
